FAERS Safety Report 4824565-0 (Version None)
Quarter: 2005Q4

REPORT INFORMATION
  Report Type: 
  Country: None (occurrence: None)
  Receive Date: 20051108
  Receipt Date: 20051024
  Transmission Date: 20060501
  Serious: Yes (Death, Hospitalization, Other)
  Sender: FDA-Public Use
  Company Number: DE_050716562

PATIENT
  Age: 66 Year
  Sex: Male

DRUGS (6)
  1. ALITMA (PEMETREXED) [Suspect]
     Indication: PERITONEAL MESOTHELIOMA MALIGNANT
     Dosage: 500 MG/M2
     Dates: start: 20041101
  2. GEMZAR [Suspect]
     Indication: PERITONEAL MESOTHELIOMA MALIGNANT
     Dates: start: 20001201, end: 20041001
  3. FOLIC ACID [Concomitant]
  4. VITAMIN B-12 [Concomitant]
  5. DEXAMETHASONE [Concomitant]
  6. CISPLATIN [Concomitant]

REACTIONS (12)
  - ACCIDENT [None]
  - ALVEOLITIS ALLERGIC [None]
  - BONE MARROW FAILURE [None]
  - DIABETES MELLITUS NON-INSULIN-DEPENDENT [None]
  - DRUG INTOLERANCE [None]
  - MALIGNANT NEOPLASM PROGRESSION [None]
  - METASTASES TO LUNG [None]
  - PERITONEAL MESOTHELIOMA MALIGNANT [None]
  - PULMONARY FIBROSIS [None]
  - RESPIRATORY FAILURE [None]
  - SARCOIDOSIS [None]
  - SINUS TACHYCARDIA [None]
